FAERS Safety Report 6513043-9 (Version None)
Quarter: 2009Q4

REPORT INFORMATION
  Report Type: 
  Country: None (occurrence: None)
  Receive Date: 20091222
  Receipt Date: 20091222
  Transmission Date: 20100525
  Serious: Yes (Hospitalization)
  Sender: FDA-Public Use
  Company Number: None

PATIENT
  Age: 46 Year
  Sex: Female
  Weight: 86.1834 kg

DRUGS (3)
  1. YAZ [Suspect]
     Indication: ENDOMETRIOSIS
     Dosage: 1 TAB DAILY PO
     Route: 048
     Dates: start: 20070801, end: 20071101
  2. ADVIL [Concomitant]
  3. TYLENOL (CAPLET) [Concomitant]

REACTIONS (2)
  - EMBOLIC STROKE [None]
  - ISCHAEMIC STROKE [None]
